FAERS Safety Report 4316817-8 (Version None)
Quarter: 2004Q1

REPORT INFORMATION
  Report Type: 
  Country: None (occurrence: None)
  Receive Date: 20040311
  Receipt Date: 20040224
  Transmission Date: 20041129
  Serious: Yes (Death, Hospitalization)
  Sender: FDA-Public Use
  Company Number: 00/01533-USE

PATIENT
  Age: 42 Year
  Sex: Female
  Weight: 68 kg

DRUGS (9)
  1. FLUDARA [Suspect]
     Indication: LUPUS NEPHRITIS
     Dosage: 30 MG/M^2/DAYS1-3/MONTHLY, SUBCUTANEOUS
     Route: 058
     Dates: start: 19981214, end: 19990222
  2. CYCLOPHOSPHAMIDE [Suspect]
     Indication: LUPUS NEPHRITIS
     Dosage: 500 MG/M2/DAY 1/MONTHLY, ORAL
     Route: 048
     Dates: start: 19981201, end: 19990201
  3. PREDNISONE [Suspect]
     Indication: LUPUS NEPHRITIS
     Dosage: TAPERING SCHEDULE, ORAL
     Route: 048
     Dates: start: 19981201, end: 19990201
  4. PLAQUENIL [Concomitant]
  5. CYCLOPHOSPHAMIDE [Concomitant]
  6. PREDNISONE [Concomitant]
  7. ATENOLOL [Concomitant]
  8. ZESTRIL [Concomitant]
  9. ESTROGEN/PROGESTERONE [Concomitant]

REACTIONS (13)
  - BONE MARROW DEPRESSION [None]
  - DIARRHOEA [None]
  - DISSEMINATED INTRAVASCULAR COAGULATION [None]
  - FEBRILE NEUTROPENIA [None]
  - GRAFT VERSUS HOST DISEASE [None]
  - LIVER FUNCTION TEST ABNORMAL [None]
  - MOUTH ULCERATION [None]
  - OTITIS EXTERNA [None]
  - PANCYTOPENIA [None]
  - PNEUMONIA [None]
  - RASH [None]
  - RESPIRATORY SYNCYTIAL VIRUS INFECTION [None]
  - SYSTEMIC CANDIDA [None]
